FAERS Safety Report 14302392 (Version 1)
Quarter: 2017Q4

REPORT INFORMATION
  Report Type: Spontaneous
  Country: US (occurrence: US)
  Receive Date: 20171219
  Receipt Date: 20171219
  Transmission Date: 20180321
  Serious: No
  Sender: FDA-Public Use
  Company Number: US-SUPERNUS PHARMACEUTICALS, INC.-2017SUP00129

PATIENT
  Age: 44 Year
  Sex: Female
  Weight: 63.49 kg

DRUGS (4)
  1. TROKENDI XR [Suspect]
     Active Substance: TOPIRAMATE
     Dosage: 50 MG, 1X/DAY (SECOND WEEK)
     Route: 048
     Dates: start: 20170513
  2. TROKENDI XR [Suspect]
     Active Substance: TOPIRAMATE
     Indication: MIGRAINE
     Dosage: 25 MG, 1X/DAY (FIRST WEEK)
     Route: 048
     Dates: start: 20170506
  3. ADVIL [Concomitant]
     Active Substance: IBUPROFEN
     Indication: HEADACHE
     Dosage: UNK, AS NEEDED
  4. IMITREX [Concomitant]
     Active Substance: SUMATRIPTAN SUCCINATE
     Indication: MIGRAINE
     Dosage: UNK, AS NEEDED

REACTIONS (10)
  - Metrorrhagia [Unknown]
  - Balance disorder [Unknown]
  - Abdominal distension [Unknown]
  - Paraesthesia [Not Recovered/Not Resolved]
  - Menstruation delayed [Unknown]
  - Dizziness [Unknown]
  - Mood swings [Unknown]
  - Headache [Unknown]
  - Drug ineffective [Unknown]
  - Migraine [Unknown]

NARRATIVE: CASE EVENT DATE: 201705
